FAERS Safety Report 15006147 (Version 1)
Quarter: 2018Q2

REPORT INFORMATION
  Report Type: Spontaneous
  Country: US (occurrence: US)
  Receive Date: 20180525
  Receipt Date: 20180525
  Transmission Date: 20180711
  Serious: Yes (Other)
  Sender: FDA-Public Use
  Company Number: None

PATIENT
  Age: 71 Year
  Sex: Female
  Weight: 71.55 kg

DRUGS (10)
  1. GABAPENTIN. [Concomitant]
     Active Substance: GABAPENTIN
  2. NAPROXEN. [Concomitant]
     Active Substance: NAPROXEN
  3. CYMBALTA [Concomitant]
     Active Substance: DULOXETINE HYDROCHLORIDE
  4. TOLTERODINE [Concomitant]
     Active Substance: TOLTERODINE
  5. PROAIR HFA [Concomitant]
     Active Substance: ALBUTEROL SULFATE
  6. EXEMESTANE. [Concomitant]
     Active Substance: EXEMESTANE
  7. LISINOPRIL. [Concomitant]
     Active Substance: LISINOPRIL
  8. CAPECITABINE. [Suspect]
     Active Substance: CAPECITABINE
     Indication: BREAST CANCER
     Route: 048
     Dates: start: 20180412, end: 20180525
  9. AFINITOR [Concomitant]
     Active Substance: EVEROLIMUS
  10. HYDROCODONE [Concomitant]
     Active Substance: HYDROCODONE

REACTIONS (1)
  - Rash [None]
